FAERS Safety Report 8973683 (Version 1)
Quarter: 2012Q4

REPORT INFORMATION
  Report Type: 
  Country: CN (occurrence: CN)
  Receive Date: 20121218
  Receipt Date: 20121218
  Transmission Date: 20130627
  Serious: Yes (Other)
  Sender: FDA-Public Use
  Company Number: PHHY2012CN108413

PATIENT
  Sex: Male

DRUGS (2)
  1. TEGRETOL [Suspect]
     Indication: EPILEPSY
     Dosage: 50 mg, BID
     Route: 048
     Dates: start: 20100208, end: 20100221
  2. TEGRETOL [Suspect]
     Indication: PARTIAL SEIZURES

REACTIONS (3)
  - Skin injury [Unknown]
  - Dermatitis exfoliative [Recovering/Resolving]
  - Skin exfoliation [Recovering/Resolving]
